FAERS Safety Report 13567793 (Version 1)
Quarter: 2017Q2

REPORT INFORMATION
  Report Type: Report from Study
  Country: None (occurrence: DO)
  Receive Date: 20170522
  Receipt Date: 20170522
  Transmission Date: 20170830
  Serious: Yes (Hospitalization)
  Sender: FDA-Public Use
  Company Number: DO-ABBVIE-17K-279-1981705-00

PATIENT
  Age: 35 Year
  Sex: Male

DRUGS (1)
  1. HUMIRA [Suspect]
     Active Substance: ADALIMUMAB
     Indication: CROHN^S DISEASE
     Route: 058
     Dates: start: 2015, end: 20170410

REACTIONS (2)
  - Gastrointestinal obstruction [Not Recovered/Not Resolved]
  - Gastrointestinal perforation [Not Recovered/Not Resolved]

NARRATIVE: CASE EVENT DATE: 20170512
